FAERS Safety Report 13896776 (Version 1)
Quarter: 2017Q3

REPORT INFORMATION
  Report Type: Spontaneous
  Country: US (occurrence: None)
  Receive Date: 20170822
  Receipt Date: 20170822
  Transmission Date: 20171127
  Serious: Yes (Hospitalization)
  Sender: FDA-Public Use
  Company Number: None

PATIENT
  Age: 74 Year
  Sex: Male
  Weight: 57.2 kg

DRUGS (1)
  1. AUGMENTIN [Suspect]
     Active Substance: AMOXICILLIN\CLAVULANATE POTASSIUM
     Dates: start: 20141202, end: 20141217

REACTIONS (4)
  - Cholestasis [None]
  - Hepatic steatosis [None]
  - Biliary tract disorder [None]
  - Drug-induced liver injury [None]

NARRATIVE: CASE EVENT DATE: 20150102
